FAERS Safety Report 5453181-5 (Version None)
Quarter: 2007Q3

REPORT INFORMATION
  Report Type: 
  Country: None (occurrence: None)
  Receive Date: 20070914
  Receipt Date: 20070904
  Transmission Date: 20080115
  Serious: Yes (Other)
  Sender: FDA-Public Use
  Company Number: US-PFIZER INC-2007074456

PATIENT
  Sex: Female
  Weight: 64 kg

DRUGS (3)
  1. CHANTIX [Suspect]
     Indication: SMOKING CESSATION THERAPY
  2. EFFEXOR [Concomitant]
  3. ATIVAN [Concomitant]

REACTIONS (1)
  - HYPOAESTHESIA FACIAL [None]
